FAERS Safety Report 15847833 (Version 2)
Quarter: 2019Q2

REPORT INFORMATION
  Report Type: Spontaneous
  Country: US (occurrence: US)
  Receive Date: 20190121
  Receipt Date: 20190405
  Transmission Date: 20190711
  Serious: Yes (Other)
  Sender: FDA-Public Use
  Company Number: US-TEVA-2019-US-1001316

PATIENT

DRUGS (1)
  1. POTASSIUM CHLORIDE ACTAVIS [Suspect]
     Active Substance: POTASSIUM CHLORIDE
     Dosage: 2 MEQ IN 1 ML
     Route: 065
     Dates: start: 2018

REACTIONS (6)
  - Product solubility abnormal [Unknown]
  - Choking [Unknown]
  - Laryngospasm [Unknown]
  - Vomiting [Unknown]
  - Product substitution issue [Unknown]
  - Product quality issue [Unknown]
